FAERS Safety Report 25342016 (Version 4)
Quarter: 2025Q3

REPORT INFORMATION
  Report Type: Spontaneous
  Country: US (occurrence: US)
  Receive Date: 20250521
  Receipt Date: 20250912
  Transmission Date: 20251021
  Serious: No
  Sender: PFIZER
  Company Number: US-PFIZER INC-202500105136

PATIENT
  Age: 61 Year
  Sex: Female

DRUGS (3)
  1. IBRANCE [Suspect]
     Active Substance: PALBOCICLIB
     Indication: Breast cancer female
     Dates: start: 20250519
  2. IBRANCE [Suspect]
     Active Substance: PALBOCICLIB
     Dates: start: 20250617
  3. IBRANCE [Suspect]
     Active Substance: PALBOCICLIB
     Dates: start: 20250724

REACTIONS (2)
  - Arthralgia [Not Recovered/Not Resolved]
  - White blood cell count decreased [Not Recovered/Not Resolved]

NARRATIVE: CASE EVENT DATE: 20250520
